FAERS Safety Report 23289418 (Version 1)
Quarter: 2023Q4

REPORT INFORMATION
  Report Type: Spontaneous
  Country: CN (occurrence: CN)
  Receive Date: 20231212
  Receipt Date: 20231212
  Transmission Date: 20240110
  Serious: Yes (Hospitalization, Other)
  Sender: FDA-Public Use
  Company Number: CN-ELI_LILLY_AND_COMPANY-CN202312000410

PATIENT
  Age: 31 Year
  Sex: Male

DRUGS (5)
  1. FLUOXETINE HYDROCHLORIDE [Suspect]
     Active Substance: FLUOXETINE HYDROCHLORIDE
     Indication: Depression
     Dosage: 10 DOSAGE FORM, DAILY
     Route: 048
     Dates: start: 20231111, end: 20231111
  2. LORAZEPAM [Suspect]
     Active Substance: LORAZEPAM
     Indication: Depression
     Dosage: 30 DOSAGE FORM, DAILY
     Route: 048
  3. SEROQUEL [Suspect]
     Active Substance: QUETIAPINE FUMARATE
     Indication: Depression
     Dosage: 10 DOSAGE FORM, DAILY
     Route: 048
     Dates: start: 20231111, end: 20231111
  4. ZOLPIDEM TARTRATE [Suspect]
     Active Substance: ZOLPIDEM TARTRATE
     Indication: Depression
     Dosage: 20 DOSAGE FORM, DAILY
     Route: 048
  5. ALPRAZOLAM [Suspect]
     Active Substance: ALPRAZOLAM
     Indication: Depression
     Dosage: 30 DOSAGE FORM, DAILY
     Route: 048
     Dates: start: 20231111, end: 20231111

REACTIONS (5)
  - Rhabdomyolysis [Recovering/Resolving]
  - Acute kidney injury [Recovering/Resolving]
  - Liver injury [Recovering/Resolving]
  - Intentional overdose [Unknown]
  - Suicide attempt [Unknown]

NARRATIVE: CASE EVENT DATE: 20231111
